FAERS Safety Report 7375635-7 (Version None)
Quarter: 2011Q1

REPORT INFORMATION
  Report Type: 
  Country: None (occurrence: None)
  Receive Date: 20110325
  Receipt Date: 20110322
  Transmission Date: 20110831
  Serious: No
  Sender: FDA-Public Use
  Company Number: US-PFIZER INC-2011064481

PATIENT

DRUGS (1)
  1. CHANTIX [Suspect]

REACTIONS (1)
  - DYSGEUSIA [None]
